FAERS Safety Report 25919629 (Version 3)
Quarter: 2025Q4

REPORT INFORMATION
  Report Type: Spontaneous
  Country: US (occurrence: US)
  Receive Date: 20251014
  Receipt Date: 20251027
  Transmission Date: 20260118
  Serious: No
  Sender: ABBVIE
  Company Number: US-ABBVIE-6497530

PATIENT
  Age: 70 Year
  Sex: Female

DRUGS (2)
  1. RISANKIZUMAB [Suspect]
     Active Substance: RISANKIZUMAB
     Indication: Psoriasis
     Dosage: 150MG/ML
     Route: 058
  2. RISANKIZUMAB [Suspect]
     Active Substance: RISANKIZUMAB
     Dosage: 150MG/ML
     Route: 058

REACTIONS (2)
  - Product storage error [Unknown]
  - Device issue [Unknown]

NARRATIVE: CASE EVENT DATE: 20251008
